FAERS Safety Report 8579104 (Version 4)
Quarter: 2012Q4

REPORT INFORMATION
  Report Type: 
  Country: PL (occurrence: PL)
  Receive Date: 20120524
  Receipt Date: 20121001
  Transmission Date: 20130627
  Serious: Yes (Death, Other)
  Sender: FDA-Public Use
  Company Number: PL-CELGENEUS-129-50794-12052184

PATIENT
  Sex: Male

DRUGS (1)
  1. VIDAZA [Suspect]
     Indication: MDS
     Route: 065
     Dates: start: 2011

REACTIONS (4)
  - Death [Fatal]
  - Malignant melanoma [Unknown]
  - Acute myeloid leukaemia [Unknown]
  - Infection [Unknown]
